FAERS Safety Report 5274361-8 (Version None)
Quarter: 2007Q1

REPORT INFORMATION
  Report Type: 
  Country: None (occurrence: None)
  Receive Date: 20070323
  Receipt Date: 20070313
  Transmission Date: 20070707
  Serious: Yes (Hospitalization, Other)
  Sender: FDA-Public Use
  Company Number: DE-PFIZER INC-2007016584

PATIENT
  Sex: Female

DRUGS (2)
  1. ZELDOX (CAPSULES) [Suspect]
     Indication: SCHIZOAFFECTIVE DISORDER
     Dosage: DAILY DOSE:80MG-FREQ:DAILY
     Route: 048
  2. VALPROATE SODIUM [Concomitant]

REACTIONS (3)
  - HYPERHIDROSIS [None]
  - URINARY INCONTINENCE [None]
  - WEIGHT INCREASED [None]
